FAERS Safety Report 8191486-8 (Version None)
Quarter: 2012Q1

REPORT INFORMATION
  Report Type: 
  Country: None (occurrence: None)
  Receive Date: 20120307
  Receipt Date: 20120229
  Transmission Date: 20120608
  Serious: No
  Sender: FDA-Public Use
  Company Number: US-B.I. PHARMACEUTICALS,INC./RIDGEFIELD-2012-BP-04185BP

PATIENT

DRUGS (2)
  1. TRADJENTA [Suspect]
     Route: 048
  2. TRADJENTA [Suspect]
     Dosage: 15 MG
     Route: 048

REACTIONS (2)
  - INCORRECT DOSE ADMINISTERED [None]
  - CREATININE RENAL CLEARANCE ABNORMAL [None]
